FAERS Safety Report 9725812 (Version 2)
Quarter: 2013Q4

REPORT INFORMATION
  Report Type: Spontaneous
  Country: GB (occurrence: GB)
  Receive Date: 20131203
  Receipt Date: 20131203
  Transmission Date: 20140711
  Serious: Yes (Other)
  Sender: FDA-Public Use
  Company Number: GB-ASTELLAS-2013EU009770

PATIENT
  Age: 47 Year
  Sex: Female
  Weight: 78.5 kg

DRUGS (4)
  1. VESICARE [Suspect]
     Dosage: UNK
     Route: 048
     Dates: start: 20130731, end: 20130815
  2. AMITRIPTYLENE [Concomitant]
     Dosage: UNK
     Route: 065
  3. SUMATRIPTAN [Concomitant]
     Dosage: UNK
     Route: 065
  4. OESTROGEL [Concomitant]
     Dosage: UNK
     Route: 065

REACTIONS (3)
  - Palpitations [Not Recovered/Not Resolved]
  - Blood pressure increased [Recovering/Resolving]
  - Chest pain [Not Recovered/Not Resolved]
